FAERS Safety Report 24984603 (Version 3)
Quarter: 2025Q1

REPORT INFORMATION
  Report Type: Spontaneous
  Country: US (occurrence: US)
  Receive Date: 20250219
  Receipt Date: 20250313
  Transmission Date: 20250408
  Serious: Yes (Other)
  Sender: ASTELLAS
  Company Number: US-ASTELLAS-2025-AER-009706

PATIENT
  Sex: Male
  Weight: 66 kg

DRUGS (4)
  1. XTANDI [Suspect]
     Active Substance: ENZALUTAMIDE
     Indication: Prostate cancer
     Route: 048
     Dates: start: 20240625
  2. TALZENNA [Suspect]
     Active Substance: TALAZOPARIB TOSYLATE
     Indication: Prostate cancer
     Route: 048
     Dates: start: 20240625
  3. TALZENNA [Suspect]
     Active Substance: TALAZOPARIB TOSYLATE
     Dosage: 1 SOFT GELATIN CAPSULE PO DAILY
     Route: 048
     Dates: end: 202502
  4. ELIGARD [Concomitant]
     Active Substance: LEUPROLIDE ACETATE
     Indication: Product used for unknown indication
     Route: 065

REACTIONS (4)
  - Chronic kidney disease [Unknown]
  - Thrombocytopenia [Unknown]
  - Pancytopenia [Unknown]
  - Anaemia [Not Recovered/Not Resolved]
